FAERS Safety Report 6744130-8 (Version None)
Quarter: 2010Q2

REPORT INFORMATION
  Report Type: 
  Country: None (occurrence: None)
  Receive Date: 20100527
  Receipt Date: 20100517
  Transmission Date: 20101027
  Serious: Yes (Other)
  Sender: FDA-Public Use
  Company Number: B0653528A

PATIENT
  Age: 59 Year
  Sex: Female

DRUGS (5)
  1. DEROXAT [Suspect]
     Indication: DEPRESSION
     Route: 048
     Dates: start: 20020101, end: 20070101
  2. ATHYMIL [Suspect]
     Indication: DEPRESSION
     Route: 065
  3. NOCTAMIDE [Suspect]
     Indication: DEPRESSION
     Route: 065
  4. STABLON [Concomitant]
     Route: 065
  5. RISPERDAL [Concomitant]
     Route: 065

REACTIONS (3)
  - EYE PAIN [None]
  - GLARE [None]
  - SICCA SYNDROME [None]
